FAERS Safety Report 10615985 (Version 1)
Quarter: 2014Q4

REPORT INFORMATION
  Report Type: Spontaneous
  Country: DK (occurrence: DK)
  Receive Date: 20141201
  Receipt Date: 20141201
  Transmission Date: 20150529
  Serious: Yes (Hospitalization)
  Sender: FDA-Public Use
  Company Number: DK-JNJFOC-20141115894

PATIENT
  Age: 81 Year
  Sex: Female

DRUGS (15)
  1. GLYCERYL TRINITRATE [Concomitant]
     Active Substance: NITROGLYCERIN
  2. TERBUTALINE SULFATE. [Concomitant]
     Active Substance: TERBUTALINE SULFATE
  3. SIMVASTATIN. [Concomitant]
     Active Substance: SIMVASTATIN
     Dates: start: 20111120
  4. AMLODIPINE BESILATE [Concomitant]
     Active Substance: AMLODIPINE BESYLATE
     Dates: start: 20131022
  5. PARACETAMOL [Concomitant]
     Active Substance: ACETAMINOPHEN
     Dates: start: 20120510
  6. CIRCADIN [Concomitant]
     Active Substance: MELATONIN
  7. HJERTEMAGNYL [Concomitant]
     Active Substance: ASPIRIN\MAGNESIUM OXIDE
     Dates: start: 20140807
  8. TRADOLAN [Concomitant]
     Active Substance: TRAMADOL
     Dates: start: 20120510
  9. XARELTO [Suspect]
     Active Substance: RIVAROXABAN
     Indication: THROMBOSIS PROPHYLAXIS
     Route: 048
     Dates: start: 20140806, end: 20141027
  10. CITALOPRAM HYDROBROMIDE. [Concomitant]
     Active Substance: CITALOPRAM HYDROBROMIDE
     Dates: start: 20131205
  11. FURIX [Concomitant]
     Active Substance: FUROSEMIDE
     Dates: start: 20140718
  12. BENSERAZIDE HYDROCHLORIDE [Concomitant]
     Active Substance: BENSERAZIDE HYDROCHLORIDE
     Dates: start: 20140717
  13. IMADRAX [Concomitant]
     Active Substance: AMOXICILLIN
  14. KALEORID [Concomitant]
     Active Substance: POTASSIUM CHLORIDE
     Dates: start: 20140718
  15. METOPROLOL SUCCINATE. [Concomitant]
     Active Substance: METOPROLOL SUCCINATE
     Dates: start: 20140805

REACTIONS (5)
  - Dyspnoea [Unknown]
  - Anaemia [Unknown]
  - Abdominal pain upper [Unknown]
  - Dizziness [Unknown]
  - Gastritis [Recovering/Resolving]

NARRATIVE: CASE EVENT DATE: 2014
